FAERS Safety Report 12719067 (Version 3)
Quarter: 2016Q4

REPORT INFORMATION
  Report Type: Spontaneous
  Country: JP (occurrence: JP)
  Receive Date: 20160907
  Receipt Date: 20161025
  Transmission Date: 20170207
  Serious: Yes (Hospitalization, Other)
  Sender: FDA-Public Use
  Company Number: JP-ROCHE-1826136

PATIENT
  Age: 67 Year
  Sex: Male
  Weight: 48 kg

DRUGS (3)
  1. METHOTREXATE. [Suspect]
     Active Substance: METHOTREXATE
     Indication: RHEUMATOID ARTHRITIS
     Route: 048
     Dates: start: 20080314
  2. ACTEMRA [Suspect]
     Active Substance: TOCILIZUMAB
     Indication: RHEUMATOID ARTHRITIS
     Route: 041
     Dates: start: 20130910
  3. METHOTREXATE. [Suspect]
     Active Substance: METHOTREXATE
     Indication: RHEUMATOID ARTHRITIS
     Route: 048
     Dates: end: 20160225

REACTIONS (7)
  - White blood cell count decreased [Unknown]
  - Pneumococcal infection [Recovered/Resolved]
  - Gastric cancer [Recovered/Resolved]
  - Acute respiratory distress syndrome [Unknown]
  - Septic shock [Unknown]
  - Weight decreased [Unknown]
  - Influenza [Unknown]

NARRATIVE: CASE EVENT DATE: 20140916
